FAERS Safety Report 7027982-6 (Version None)
Quarter: 2010Q4

REPORT INFORMATION
  Report Type: 
  Country: None (occurrence: None)
  Receive Date: 20101005
  Receipt Date: 20100922
  Transmission Date: 20110411
  Serious: Yes (Other)
  Sender: FDA-Public Use
  Company Number: US-US-EMD SERONO, INC.-237208K09USA

PATIENT
  Sex: Female
  Weight: 109 kg

DRUGS (7)
  1. REBIF [Suspect]
     Indication: MULTIPLE SCLEROSIS
     Route: 058
     Dates: start: 20080701
  2. LEVOTHYROXINE SODIUM [Concomitant]
     Indication: THYROIDECTOMY
     Route: 048
     Dates: start: 20080601
  3. CALCIUM [Concomitant]
     Indication: THYROIDECTOMY
     Route: 048
     Dates: start: 20080601
  4. TRAMADOL HCL [Concomitant]
     Indication: PAIN
     Route: 048
     Dates: start: 20070501
  5. LEXAPRO [Concomitant]
     Indication: DEPRESSION
     Route: 048
  6. LISINOPRIL [Concomitant]
     Indication: HYPERTENSION
     Route: 048
     Dates: start: 20090101
  7. XANAX [Concomitant]
     Indication: ANXIETY
     Route: 048

REACTIONS (2)
  - CERVICAL DYSPLASIA [None]
  - THYROID DISORDER [None]
